FAERS Safety Report 10364519 (Version 1)
Quarter: 2014Q3

REPORT INFORMATION
  Report Type: Spontaneous
  Country: US (occurrence: None)
  Receive Date: 20140804
  Receipt Date: 20140804
  Transmission Date: 20150326
  Serious: Yes (Disabling)
  Sender: FDA-Public Use
  Company Number: None

PATIENT
  Age: 57 Year
  Sex: Female
  Weight: 104.33 kg

DRUGS (1)
  1. LEVOFLOXACIN [Suspect]
     Active Substance: LEVOFLOXACIN
     Indication: SINUSITIS
     Dosage: 1 PILL
     Dates: start: 20140728, end: 20140730

REACTIONS (7)
  - Depression [None]
  - Muscle spasms [None]
  - Pain in extremity [None]
  - Dizziness [None]
  - Arthralgia [None]
  - Pain [None]
  - Musculoskeletal pain [None]

NARRATIVE: CASE EVENT DATE: 20140728
